FAERS Safety Report 6703778-7 (Version None)
Quarter: 2010Q2

REPORT INFORMATION
  Report Type: 
  Country: None (occurrence: None)
  Receive Date: 20100430
  Receipt Date: 20100419
  Transmission Date: 20101027
  Serious: Yes (Hospitalization)
  Sender: FDA-Public Use
  Company Number: US-ELI_LILLY_AND_COMPANY-US201004004871

PATIENT
  Sex: Female

DRUGS (6)
  1. BYETTA [Suspect]
     Indication: DIABETES MELLITUS
     Dosage: 5 UG, 2/D
  2. BYETTA [Suspect]
     Dosage: 10 UG, 2/D
  3. COREG [Concomitant]
     Dosage: 25 MG, DAILY (1/D)
  4. COREG [Concomitant]
     Dosage: 6.25 MG, DAILY (1/D)
  5. GLUCOPHAGE [Concomitant]
     Dosage: 1000 MG, EACH MORNING
  6. GLUCOPHAGE [Concomitant]
     Dosage: 500 MG, EACH EVENING

REACTIONS (1)
  - STRESS [None]
